FAERS Safety Report 4867088-5 (Version None)
Quarter: 2005Q4

REPORT INFORMATION
  Report Type: 
  Country: None (occurrence: None)
  Receive Date: 20051222
  Receipt Date: 20051210
  Transmission Date: 20060501
  Serious: No
  Sender: FDA-Public Use
  Company Number: US016517

PATIENT
  Age: 3 Year
  Sex: Male
  Weight: 14.9687 kg

DRUGS (1)
  1. ACTIQ [Suspect]
     Dosage: 200 UG ONCE BUCCAL
     Route: 002
     Dates: start: 20051210, end: 20051210

REACTIONS (1)
  - ACCIDENTAL DRUG INTAKE BY CHILD [None]
